FAERS Safety Report 14458654 (Version 3)
Quarter: 2018Q1

REPORT INFORMATION
  Report Type: Other
  Country: IT (occurrence: IT)
  Receive Date: 20180130
  Receipt Date: 20180213
  Transmission Date: 20180509
  Serious: Yes (Hospitalization)
  Sender: FDA-Public Use
  Company Number: IT-CELLTRION INC.-2018IT017559

PATIENT

DRUGS (3)
  1. FLEBOCORTID [Concomitant]
     Active Substance: HYDROCORTISONE SODIUM SUCCINATE
  2. REMSIMA [Suspect]
     Active Substance: INFLIXIMAB
     Indication: RHEUMATOID ARTHRITIS
     Dosage: 153 MG
     Route: 042
     Dates: start: 20170430, end: 20170430
  3. REMSIMA [Suspect]
     Active Substance: INFLIXIMAB
     Dosage: 153 MG
     Route: 042
     Dates: start: 20180122, end: 20180122

REACTIONS (5)
  - Hypersensitivity [Recovered/Resolved]
  - Choking sensation [Recovered/Resolved]
  - Vomiting [Recovered/Resolved]
  - Erythema [Recovered/Resolved]
  - Dyspnoea [Recovered/Resolved]

NARRATIVE: CASE EVENT DATE: 20180122
